FAERS Safety Report 7582520-4 (Version None)
Quarter: 2011Q2

REPORT INFORMATION
  Report Type: 
  Country: None (occurrence: None)
  Receive Date: 20110630
  Receipt Date: 20110622
  Transmission Date: 20111010
  Serious: Yes (Other)
  Sender: FDA-Public Use
  Company Number: JP-ASTELLAS-2011JP004158

PATIENT
  Age: 34 Year
  Sex: Female

DRUGS (10)
  1. VORICONAZOLE [Interacting]
     Indication: PLEURISY
     Dosage: 380 MG, UNKNOWN/D
     Route: 042
  2. PROGRAF [Suspect]
     Dosage: 4 MG, UNKNOWN/D
     Route: 048
  3. VORICONAZOLE [Interacting]
     Dosage: 400 MG, UNKNOWN/D
     Route: 048
  4. PROGRAF [Interacting]
     Dosage: 0.4 MG, UNKNOWN/D
     Route: 048
  5. L-PAM [Concomitant]
     Route: 065
  6. PROGRAF [Interacting]
     Indication: PROPHYLAXIS AGAINST GRAFT VERSUS HOST DISEASE
     Dosage: 2 MG, UNKNOWN/D
     Route: 042
  7. PROGRAF [Interacting]
     Dosage: 1 MG, UNKNOWN/D
     Route: 048
  8. FLUDARABINE PHOSPHATE [Concomitant]
     Dosage: UNK
     Route: 065
  9. METHOTREXATE [Concomitant]
     Indication: PROPHYLAXIS AGAINST GRAFT VERSUS HOST DISEASE
     Route: 065
  10. PREDNISOLONE [Concomitant]
     Indication: ACUTE GRAFT VERSUS HOST DISEASE
     Route: 065

REACTIONS (3)
  - DRUG INEFFECTIVE [None]
  - DRUG INTERACTION [None]
  - ACUTE GRAFT VERSUS HOST DISEASE [None]
